FAERS Safety Report 16258748 (Version 1)
Quarter: 2019Q2

REPORT INFORMATION
  Report Type: Report from Study
  Country: None (occurrence: US)
  Receive Date: 20190430
  Receipt Date: 20190430
  Transmission Date: 20190711
  Serious: Yes (Other)
  Sender: FDA-Public Use
  Company Number: US-ABBVIE-19S-163-2756555-00

PATIENT
  Age: 67 Year
  Sex: Female

DRUGS (2)
  1. INSULIN [Concomitant]
     Active Substance: INSULIN NOS
     Indication: PRODUCT USED FOR UNKNOWN INDICATION
  2. CREON [Suspect]
     Active Substance: PANCRELIPASE AMYLASE\PANCRELIPASE LIPASE\PANCRELIPASE PROTEASE
     Indication: PRODUCT USED FOR UNKNOWN INDICATION
     Route: 048

REACTIONS (34)
  - Diabetes mellitus inadequate control [Unknown]
  - Chest pain [Unknown]
  - Atrial fibrillation [Unknown]
  - Hyperkalaemia [Unknown]
  - Rheumatoid arthritis [Unknown]
  - Renal hypertension [Unknown]
  - Drug dependence [Unknown]
  - Facial bones fracture [Unknown]
  - Jaundice [Unknown]
  - Body mass index decreased [Unknown]
  - Muscle spasms [Unknown]
  - Diarrhoea [Unknown]
  - Gait disturbance [Unknown]
  - Constipation [Unknown]
  - Pancreatitis chronic [Unknown]
  - Fall [Unknown]
  - Cerebrovascular accident [Unknown]
  - Diabetic nephropathy [Unknown]
  - Psoriasis [Unknown]
  - Pancreatic necrosis [Unknown]
  - Limb deformity [Unknown]
  - Fall [Unknown]
  - Dyspepsia [Unknown]
  - Nephrotic syndrome [Unknown]
  - Dizziness [Unknown]
  - Chronic kidney disease [Unknown]
  - Hypertension [Unknown]
  - Thyroid disorder [Unknown]
  - Hand fracture [Unknown]
  - Rash [Unknown]
  - Fall [Unknown]
  - Arthritis [Unknown]
  - Skin laceration [Unknown]
  - Diarrhoea [Unknown]

NARRATIVE: CASE EVENT DATE: 20170201
